FAERS Safety Report 9802787 (Version 1)
Quarter: 2014Q1

REPORT INFORMATION
  Report Type: Spontaneous
  Country: US (occurrence: None)
  Receive Date: 20140106
  Receipt Date: 20140106
  Transmission Date: 20141002
  Serious: No
  Sender: FDA-Public Use
  Company Number: None

PATIENT
  Age: 21 Year
  Sex: Female
  Weight: 63.5 kg

DRUGS (3)
  1. MIRENA IUD [Suspect]
     Indication: DYSMENORRHOEA
  2. MIRENA IUD [Suspect]
     Indication: HAEMORRHAGE
  3. MIRENA IUD [Suspect]
     Indication: CONTRACEPTION

REACTIONS (2)
  - Alopecia [None]
  - Alopecia [None]
